FAERS Safety Report 12987842 (Version 6)
Quarter: 2017Q4

REPORT INFORMATION
  Report Type: Report from Study
  Country: US (occurrence: US)
  Receive Date: 20161130
  Receipt Date: 20171127
  Transmission Date: 20180320
  Serious: Yes (Other)
  Sender: FDA-Public Use
  Company Number: PHEH2016US031060

PATIENT
  Age: 62 Year
  Sex: Male

DRUGS (1)
  1. ENTRESTO [Suspect]
     Active Substance: SACUBITRIL\VALSARTAN
     Indication: CARDIAC FAILURE CONGESTIVE
     Dosage: 1 DF (49 MG SACUBITRIL/51 MG VALSARTAN), BID
     Route: 048
     Dates: start: 20151201

REACTIONS (9)
  - Back injury [Unknown]
  - Back pain [Unknown]
  - Paraesthesia [Unknown]
  - Ventricular hypokinesia [Unknown]
  - Ulnar nerve injury [Unknown]
  - Tricuspid valve incompetence [Unknown]
  - Rib fracture [Recovering/Resolving]
  - Fall [Unknown]
  - Ventricular dyskinesia [Unknown]

NARRATIVE: CASE EVENT DATE: 20160316
